FAERS Safety Report 16317700 (Version 1)
Quarter: 2019Q2

REPORT INFORMATION
  Report Type: Report from Study
  Country: US (occurrence: US)
  Receive Date: 20190516
  Receipt Date: 20190516
  Transmission Date: 20190711
  Serious: Yes (Other)
  Sender: FDA-Public Use
  Company Number: US-ROCHE-2315011

PATIENT
  Sex: Female

DRUGS (1)
  1. OCREVUS [Suspect]
     Active Substance: OCRELIZUMAB
     Indication: MULTIPLE SCLEROSIS
     Dosage: ONGOING-UNKNOWN
     Route: 065
     Dates: start: 20190401

REACTIONS (3)
  - Ear infection [Unknown]
  - Pneumonia [Unknown]
  - Adrenal insufficiency [Not Recovered/Not Resolved]
